FAERS Safety Report 11501304 (Version 1)
Quarter: 2015Q3

REPORT INFORMATION
  Report Type: Spontaneous
  Country: US (occurrence: None)
  Receive Date: 20150911
  Receipt Date: 20150911
  Transmission Date: 20151125
  Serious: No
  Sender: FDA-Public Use
  Company Number: None

PATIENT
  Age: 31 Year
  Sex: Female
  Weight: 104.33 kg

DRUGS (4)
  1. LEVOFLOXACIN. [Suspect]
     Active Substance: LEVOFLOXACIN
     Indication: GASTROENTERITIS
     Route: 048
     Dates: start: 20150908, end: 20150909
  2. WELLBUTRIN [Concomitant]
     Active Substance: BUPROPION HYDROCHLORIDE
  3. GLIDESS [Concomitant]
  4. METFORMIN [Concomitant]
     Active Substance: METFORMIN HYDROCHLORIDE

REACTIONS (9)
  - Hypoaesthesia [None]
  - Joint stiffness [None]
  - Pain in extremity [None]
  - Paraesthesia [None]
  - Chest pain [None]
  - Arthralgia [None]
  - Vision blurred [None]
  - Muscle tightness [None]
  - Muscle spasms [None]

NARRATIVE: CASE EVENT DATE: 20150908
